FAERS Safety Report 16782030 (Version 2)
Quarter: 2020Q2

REPORT INFORMATION
  Report Type: Report from Study
  Country: CL (occurrence: CL)
  Receive Date: 20190906
  Receipt Date: 20200618
  Transmission Date: 20200713
  Serious: Yes (Hospitalization)
  Sender: FDA-Public Use
  Company Number: CL-BAYER-2019-163329

PATIENT
  Age: 29 Year
  Sex: Female

DRUGS (3)
  1. BREELIB (DEVICE) [Suspect]
     Active Substance: DEVICE
     Dosage: UNK
  2. ADEMPAS [Suspect]
     Active Substance: RIOCIGUAT
     Dosage: UNK
  3. VENTAVIS [Suspect]
     Active Substance: ILOPROST
     Indication: PULMONARY HYPERTENSION
     Dosage: 2 ML, 6ID
     Route: 055
     Dates: start: 20190813

REACTIONS (3)
  - Hospitalisation [Not Recovered/Not Resolved]
  - Headache [Unknown]
  - Device power source issue [Unknown]

NARRATIVE: CASE EVENT DATE: 2019
